FAERS Safety Report 10842431 (Version 2)
Quarter: 2015Q2

REPORT INFORMATION
  Report Type: Report from Study
  Country: JP (occurrence: JP)
  Receive Date: 20150220
  Receipt Date: 20150408
  Transmission Date: 20150821
  Serious: Yes (Other)
  Sender: FDA-Public Use
  Company Number: JP-009507513-1502JPN007601

PATIENT
  Age: 43 Year
  Sex: Female
  Weight: 45 kg

DRUGS (8)
  1. RIBAVIRIN. [Suspect]
     Active Substance: RIBAVIRIN
     Indication: CHRONIC HEPATITIS C
     Dosage: 600 MG, QD
     Route: 048
     Dates: start: 20141007
  2. ROHYPNOL [Concomitant]
     Active Substance: FLUNITRAZEPAM
     Indication: INSOMNIA
     Dosage: 2 MG, QD
     Route: 048
  3. SIMEPREVIR [Suspect]
     Active Substance: SIMEPREVIR
     Indication: CHRONIC HEPATITIS C
     Dosage: 100 MG, QD
     Route: 048
     Dates: start: 20141007, end: 20141229
  4. PEGINTRON [Suspect]
     Active Substance: PEGINTERFERON ALFA-2B
     Indication: CHRONIC HEPATITIS C
     Dosage: 1.77 MICROGRAM PER KILOGRAM, QW
     Route: 058
     Dates: start: 20141007, end: 20141031
  5. ERIMIN [Concomitant]
     Active Substance: NIMETAZEPAM
     Indication: INSOMNIA
     Dosage: 5 MG, QD
     Route: 048
  6. LOXOPROFEN [Concomitant]
     Active Substance: LOXOPROFEN
     Indication: PROPHYLAXIS
     Dosage: 120 MG, QD
     Route: 048
  7. PEGINTRON [Suspect]
     Active Substance: PEGINTERFERON ALFA-2B
     Dosage: 1.32 MICROGRAM PER KILOGRAM, QW
     Route: 058
     Dates: start: 20141114
  8. DEPAS [Concomitant]
     Active Substance: ETIZOLAM
     Dosage: 2 MG, QD
     Route: 048

REACTIONS (5)
  - Decreased appetite [Recovered/Resolved]
  - Platelet count decreased [Recovered/Resolved]
  - Injection site pruritus [Recovering/Resolving]
  - Platelet count decreased [Unknown]
  - Nasopharyngitis [Recovered/Resolved]

NARRATIVE: CASE EVENT DATE: 20141014
